FAERS Safety Report 6783604-0 (Version None)
Quarter: 2010Q2

REPORT INFORMATION
  Report Type: 
  Country: None (occurrence: None)
  Receive Date: 20100622
  Receipt Date: 20100610
  Transmission Date: 20101027
  Serious: Yes (Death, Other)
  Sender: FDA-Public Use
  Company Number: US-ROCHE-638072

PATIENT
  Sex: Male
  Weight: 70.5 kg

DRUGS (1)
  1. XELODA [Suspect]
     Dosage: 2 WEEKS ON; ONE WEEK OFF
     Route: 048
     Dates: start: 20090501, end: 20091124

REACTIONS (3)
  - MALIGNANT NEOPLASM PROGRESSION [None]
  - MULTI-ORGAN FAILURE [None]
  - PARAESTHESIA [None]
